FAERS Safety Report 13600119 (Version 1)
Quarter: 2017Q2

REPORT INFORMATION
  Report Type: Spontaneous
  Country: CH (occurrence: CH)
  Receive Date: 20170601
  Receipt Date: 20170601
  Transmission Date: 20170830
  Serious: Yes (Hospitalization)
  Sender: FDA-Public Use
  Company Number: CH-ASTRAZENECA-2017SE55503

PATIENT
  Age: 7901 Day
  Sex: Female

DRUGS (12)
  1. RITALIN [Concomitant]
     Active Substance: METHYLPHENIDATE HYDROCHLORIDE
     Route: 048
  2. MAGNESIUM CITRATE. [Concomitant]
     Active Substance: MAGNESIUM CITRATE
     Dosage: 300 MG DAILY
     Route: 048
  3. SEROQUEL [Suspect]
     Active Substance: QUETIAPINE FUMARATE
     Route: 048
     Dates: start: 20170109, end: 20170109
  4. VI-DE 3 [Concomitant]
     Active Substance: CHOLECALCIFEROL
     Route: 048
  5. NOVALGIN [Concomitant]
     Active Substance: METAMIZOLE SODIUM
     Dosage: 1.0DF UNKNOWN
     Route: 048
  6. SEROQUEL [Suspect]
     Active Substance: QUETIAPINE FUMARATE
     Route: 048
     Dates: end: 20170108
  7. DAFALGAN [Concomitant]
     Active Substance: ACETAMINOPHEN
     Dosage: 1.0DF UNKNOWN
     Route: 048
  8. VALERIANA OFFICINALIS ROOT [Concomitant]
     Active Substance: VALERIAN
     Dosage: 1.0DF UNKNOWN
     Route: 048
  9. SEROQUEL [Suspect]
     Active Substance: QUETIAPINE FUMARATE
     Route: 048
     Dates: start: 20170110
  10. FREKA-CLYSS [Concomitant]
     Dosage: 1.0DF UNKNOWN
     Route: 054
  11. TEMESTA [Concomitant]
     Active Substance: LORAZEPAM
     Dosage: 1.0DF UNKNOWN
     Route: 048
  12. NOZINAN [Concomitant]
     Active Substance: LEVOMEPROMAZINE
     Dosage: 1.0DF UNKNOWN
     Route: 048

REACTIONS (2)
  - Disturbance in attention [Recovered/Resolved]
  - Somnolence [Recovered/Resolved]

NARRATIVE: CASE EVENT DATE: 20170108
